FAERS Safety Report 6406717-1 (Version None)
Quarter: 2009Q4

REPORT INFORMATION
  Report Type: 
  Country: None (occurrence: None)
  Receive Date: 20091020
  Receipt Date: 20091012
  Transmission Date: 20100525
  Serious: Yes (Hospitalization)
  Sender: FDA-Public Use
  Company Number: US-ELI_LILLY_AND_COMPANY-US200910002464

PATIENT
  Sex: Female

DRUGS (6)
  1. HUMULIN 70/30 [Suspect]
     Dates: start: 19990101
  2. HUMULIN 70/30 [Suspect]
  3. ATENOLOL [Concomitant]
  4. HYDROCHLOROTHIAZIDE [Concomitant]
  5. ASPIRIN [Concomitant]
  6. INSULIN [Concomitant]
     Dates: start: 19790101

REACTIONS (4)
  - ANXIETY [None]
  - CATARACT [None]
  - CORONARY ARTERY OCCLUSION [None]
  - VISION BLURRED [None]
